FAERS Safety Report 22355566 (Version 2)
Quarter: 2023Q2

REPORT INFORMATION
  Report Type: Spontaneous
  Country: ID (occurrence: ID)
  Receive Date: 20230523
  Receipt Date: 20230606
  Transmission Date: 20230721
  Serious: No
  Sender: FDA-Public Use
  Company Number: ID-SA-SAC20230522001505

PATIENT
  Sex: Female

DRUGS (5)
  1. RIFAMPIN [Suspect]
     Active Substance: RIFAMPIN
     Indication: Cutaneous tuberculosis
     Dosage: UNK
  2. LEVOFLOXACIN [Suspect]
     Active Substance: LEVOFLOXACIN
     Indication: Cutaneous tuberculosis
     Dosage: UNK
  3. ETHAMBUTOL [Suspect]
     Active Substance: ETHAMBUTOL HYDROCHLORIDE
     Indication: Cutaneous tuberculosis
     Dosage: UNK
  4. ISONIAZID [Suspect]
     Active Substance: ISONIAZID
     Indication: Cutaneous tuberculosis
     Dosage: UNK
  5. PYRAZINAMIDE [Suspect]
     Active Substance: PYRAZINAMIDE
     Indication: Cutaneous tuberculosis
     Dosage: UNK

REACTIONS (3)
  - Drug eruption [Unknown]
  - Skin lesion [Unknown]
  - Exposure during pregnancy [Unknown]
